FAERS Safety Report 6151974-2 (Version None)
Quarter: 2009Q2

REPORT INFORMATION
  Report Type: 
  Country: None (occurrence: None)
  Receive Date: 20090410
  Receipt Date: 20090403
  Transmission Date: 20091009
  Serious: Yes (Hospitalization)
  Sender: FDA-Public Use
  Company Number: US-GENENTECH-279148

PATIENT
  Sex: Male
  Weight: 63.039 kg

DRUGS (7)
  1. BEVACIZUMAB [Suspect]
     Indication: OESOPHAGEAL CARCINOMA
     Dosage: 15 MG/KG, DAYS 1+22
     Dates: start: 20090210
  2. ERLOTINIB [Suspect]
     Indication: OESOPHAGEAL CARCINOMA
     Dosage: 100 MG, QD
     Dates: start: 20090210
  3. TAXOL [Suspect]
     Indication: OESOPHAGEAL CARCINOMA
     Dosage: 200 MG/M2, DAYS 1+22
     Dates: start: 20090210
  4. CARBOPLATIN [Suspect]
     Indication: OESOPHAGEAL CARCINOMA
     Dosage: 5 AUC, DAYS 1+22
     Dates: start: 20090210
  5. FLUOROURACIL [Suspect]
     Indication: OESOPHAGEAL CARCINOMA
     Dosage: 1575 MG/M2, QD
     Dates: start: 20090210
  6. RADIOTHERAPY [Concomitant]
     Indication: OESOPHAGEAL CARCINOMA
  7. COMPAZINE [Concomitant]
     Indication: NAUSEA
     Dosage: 10 MG, PRN

REACTIONS (1)
  - MUCOSAL INFLAMMATION [None]
